FAERS Safety Report 4398537-7 (Version None)
Quarter: 2004Q3

REPORT INFORMATION
  Report Type: 
  Country: None (occurrence: None)
  Receive Date: 20040713
  Receipt Date: 20040701
  Transmission Date: 20050211
  Serious: Yes (Other)
  Sender: FDA-Public Use
  Company Number: 207625

PATIENT
  Age: 5 Year
  Sex: Male

DRUGS (3)
  1. MABTHERA (RITUXIMAB) CONC FOR SOLUTION FOR INFUSION [Suspect]
     Indication: DIFFUSE LARGE B-CELL LYMPHOMA
  2. DAUNOXOME (DAUNORUBICIN HYDROCHLORIDE) [Concomitant]
  3. VINCRISTINE [Concomitant]

REACTIONS (1)
  - PANCREATITIS [None]
